FAERS Safety Report 14507553 (Version 1)
Quarter: 2018Q1

REPORT INFORMATION
  Report Type: Spontaneous
  Country: GB (occurrence: IT)
  Receive Date: 20180208
  Receipt Date: 20180208
  Transmission Date: 20180509
  Serious: Yes (Life-Threatening)
  Sender: FDA-Public Use
  Company Number: IT-FRESENIUS KABI-FK201801370

PATIENT
  Age: 84 Year
  Sex: Male

DRUGS (1)
  1. LEVOFLOXACIN KABI 5 MG / ML [Suspect]
     Active Substance: LEVOFLOXACIN
     Indication: BRONCHOPNEUMOPATHY
     Route: 042
     Dates: start: 20171122, end: 20171122

REACTIONS (1)
  - Epilepsy [Not Recovered/Not Resolved]

NARRATIVE: CASE EVENT DATE: 20171122
